FAERS Safety Report 18366636 (Version 2)
Quarter: 2020Q4

REPORT INFORMATION
  Report Type: Spontaneous
  Country: PT (occurrence: PT)
  Receive Date: 20201009
  Receipt Date: 20201020
  Transmission Date: 20210114
  Serious: Yes (Other)
  Sender: FDA-Public Use
  Company Number: PT-PFIZER INC-2020364331

PATIENT
  Age: 74 Year
  Sex: Male

DRUGS (3)
  1. CARDURA GITS [Suspect]
     Active Substance: DOXAZOSIN MESYLATE
     Indication: BENIGN PROSTATIC HYPERPLASIA
  2. CARDURA GITS [Suspect]
     Active Substance: DOXAZOSIN MESYLATE
     Indication: HYPERTENSION
     Dosage: 16 MG, 1X/DAY (TWO 8 MG TABLETS AT NIGHT)
     Route: 048
     Dates: start: 2014, end: 20200919
  3. NORVASC [Suspect]
     Active Substance: AMLODIPINE BESYLATE
     Indication: HYPERTENSION
     Dosage: UNK
     Dates: end: 202009

REACTIONS (6)
  - Dementia Alzheimer^s type [Not Recovered/Not Resolved]
  - Aphasia [Not Recovered/Not Resolved]
  - Urinary incontinence [Not Recovered/Not Resolved]
  - Memory impairment [Not Recovered/Not Resolved]
  - Dysphonia [Recovered/Resolved]
  - Cough [Recovered/Resolved]

NARRATIVE: CASE EVENT DATE: 20200919
